FAERS Safety Report 7249767-8 (Version None)
Quarter: 2011Q1

REPORT INFORMATION
  Report Type: 
  Country: None (occurrence: None)
  Receive Date: 20110128
  Receipt Date: 20100226
  Transmission Date: 20110831
  Serious: No
  Sender: FDA-Public Use
  Company Number: A0847031A

PATIENT
  Age: 19 Year
  Sex: Female

DRUGS (4)
  1. ADDERALL XR 10 [Concomitant]
  2. WELLBUTRIN [Suspect]
     Route: 048
  3. GABITRIL [Concomitant]
  4. ZOLOFT [Concomitant]

REACTIONS (1)
  - RASH [None]
